FAERS Safety Report 8563569-1 (Version None)
Quarter: 2012Q3

REPORT INFORMATION
  Report Type: 
  Country: None (occurrence: None)
  Receive Date: 20120803
  Receipt Date: 20120725
  Transmission Date: 20120928
  Serious: No
  Sender: FDA-Public Use
  Company Number: US-009507513-1207USA011586

PATIENT

DRUGS (13)
  1. CYMBALTA [Concomitant]
  2. LEVITRA [Concomitant]
  3. OMEPRAZOLE [Concomitant]
  4. ZYRTEC [Concomitant]
  5. GABAPENTIN [Concomitant]
  6. FLUTICASONE PROPIONATE [Concomitant]
  7. AMITRIPTYLINE HCL [Concomitant]
  8. LUNESTA [Concomitant]
  9. JANUMET [Suspect]
     Indication: DIABETES MELLITUS
     Dosage: 50/500MG, BID
     Route: 048
  10. ALBUTEROL [Concomitant]
  11. BYSTOLIC [Concomitant]
  12. AMLODIPINE [Concomitant]
  13. TESTOSTERONE [Concomitant]

REACTIONS (2)
  - DIARRHOEA [None]
  - PARAESTHESIA ORAL [None]
